FAERS Safety Report 23823489 (Version 1)
Quarter: 2024Q2

REPORT INFORMATION
  Report Type: Spontaneous
  Country: US (occurrence: US)
  Receive Date: 20240507
  Receipt Date: 20240507
  Transmission Date: 20240716
  Serious: No
  Sender: FDA-Public Use
  Company Number: US-PADAGIS-2024PAD00736

PATIENT

DRUGS (2)
  1. IMIQUIMOD [Suspect]
     Active Substance: IMIQUIMOD
     Indication: Malignant melanoma in situ
     Dosage: UNK
     Route: 065
  2. IMIQUIMOD [Suspect]
     Active Substance: IMIQUIMOD
     Indication: Melanocytic hyperplasia
     Dosage: UNK, DECREASED THREE TIMES PER WEEK
     Route: 065

REACTIONS (2)
  - Skin irritation [Unknown]
  - Product use in unapproved indication [Unknown]
